FAERS Safety Report 8930522 (Version 3)
Quarter: 2013Q4

REPORT INFORMATION
  Report Type: Report from Study
  Country: US (occurrence: US)
  Receive Date: 20121128
  Receipt Date: 20131001
  Transmission Date: 20140711
  Serious: Yes (Death, Other)
  Sender: FDA-Public Use
  Company Number: US-ALEXION-A201202237

PATIENT
  Age: 16 Year
  Sex: Male
  Weight: 137 kg

DRUGS (12)
  1. SOLIRIS [Suspect]
     Indication: HAEMOLYTIC URAEMIC SYNDROME
     Dosage: 900 MG, QW
     Route: 042
     Dates: start: 20120630
  2. SOLIRIS [Suspect]
     Dosage: 1200 UNK, SINGLE
     Route: 042
  3. SOLIRIS [Suspect]
     Dosage: 1200 UNK, UNK
     Route: 042
  4. SOLIRIS [Suspect]
     Dosage: 1500 MG, UNK
     Route: 042
  5. ETANERCEPT [Concomitant]
  6. SOLUMEDROL [Concomitant]
  7. CELLCEPT [Concomitant]
  8. MICAFUNGIN [Concomitant]
  9. POSACONAZOLE [Concomitant]
  10. LEXAPRO [Concomitant]
  11. VALTREX [Concomitant]
  12. ATOVAQUONE [Concomitant]

REACTIONS (5)
  - Respiratory failure [Fatal]
  - Hepatic failure [Unknown]
  - Enterococcal infection [Unknown]
  - Aspergillus infection [Unknown]
  - Graft versus host disease [Unknown]
